FAERS Safety Report 9837074 (Version 3)
Quarter: 2015Q4

REPORT INFORMATION
  Report Type: Report from Study
  Country: US (occurrence: US)
  Receive Date: 20140123
  Receipt Date: 20151002
  Transmission Date: 20160305
  Serious: Yes (Death)
  Sender: FDA-Public Use
  Company Number: US-ROCHE-1337781

PATIENT
  Sex: Female
  Weight: 76.27 kg

DRUGS (20)
  1. CISPLATIN. [Concomitant]
     Active Substance: CISPLATIN
  2. SYNTHROID [Concomitant]
     Active Substance: LEVOTHYROXINE SODIUM
     Route: 048
  3. MARINOL (UNITED STATES) [Concomitant]
     Dosage: 1 CAPSULE
     Route: 048
  4. GRANISETRON HCL [Concomitant]
     Dosage: AS DIRECTED
     Route: 048
  5. MIRALAX [Concomitant]
     Active Substance: POLYETHYLENE GLYCOL 3350
  6. TRAMADOL HCL [Concomitant]
     Active Substance: TRAMADOL HYDROCHLORIDE
     Dosage: 1 TABLET
     Route: 065
  7. TOPOTECAN [Concomitant]
     Active Substance: TOPOTECAN\TOPOTECAN HYDROCHLORIDE
  8. CARBOPLATIN. [Concomitant]
     Active Substance: CARBOPLATIN
  9. NEXIUM [Concomitant]
     Active Substance: ESOMEPRAZOLE MAGNESIUM
     Route: 048
  10. WELLBUTRIN SR [Concomitant]
     Active Substance: BUPROPION HYDROCHLORIDE
     Dosage: 90 DAYS, 3 REFILLS.
     Route: 048
  11. TAXOL [Concomitant]
     Active Substance: PACLITAXEL
  12. DOXIL [Concomitant]
     Active Substance: DOXORUBICIN HYDROCHLORIDE
  13. GEMZAR [Concomitant]
     Active Substance: GEMCITABINE HYDROCHLORIDE
  14. WELLBUTRIN SR [Concomitant]
     Active Substance: BUPROPION HYDROCHLORIDE
     Route: 065
  15. METOCLOPRAMIDE HCL [Concomitant]
     Active Substance: METOCLOPRAMIDE HYDROCHLORIDE
     Route: 048
  16. AVASTIN [Suspect]
     Active Substance: BEVACIZUMAB
     Indication: METASTASES TO NERVOUS SYSTEM
     Route: 065
     Dates: end: 20100812
  17. AMBIEN [Concomitant]
     Active Substance: ZOLPIDEM TARTRATE
     Dosage: PRN SLEEP
     Route: 048
  18. CYTOMEL [Concomitant]
     Active Substance: LIOTHYRONINE SODIUM
     Dosage: 90 DAYS, 1 REFILLS
     Route: 048
  19. OXYCODONE HYDROCHLORIDE. [Concomitant]
     Active Substance: OXYCODONE HYDROCHLORIDE
     Route: 048
  20. PRIMIDONE. [Concomitant]
     Active Substance: PRIMIDONE
     Route: 065

REACTIONS (2)
  - Peritoneal carcinoma metastatic [Fatal]
  - Off label use [Unknown]

NARRATIVE: CASE EVENT DATE: 2009
